FAERS Safety Report 15721854 (Version 1)
Quarter: 2018Q4

REPORT INFORMATION
  Report Type: Spontaneous
  Country: US (occurrence: US)
  Receive Date: 20181214
  Receipt Date: 20181214
  Transmission Date: 20190205
  Serious: No
  Sender: FDA-Public Use
  Company Number: US-PFIZER INC-2018512946

PATIENT
  Age: 93 Year
  Sex: Female

DRUGS (1)
  1. IBRANCE [Suspect]
     Active Substance: PALBOCICLIB
     Dosage: 125 MG, CYCLIC [Q DAY X21, 7 DAYS OFF]

REACTIONS (4)
  - Asthenia [Unknown]
  - Weight decreased [Unknown]
  - Dysstasia [Unknown]
  - Hypersomnia [Unknown]
